FAERS Safety Report 6935664-1 (Version None)
Quarter: 2010Q3

REPORT INFORMATION
  Report Type: 
  Country: None (occurrence: None)
  Receive Date: 20100823
  Receipt Date: 20100812
  Transmission Date: 20110219
  Serious: Yes (Hospitalization)
  Sender: FDA-Public Use
  Company Number: US-JNJFOC-20100805132

PATIENT
  Sex: Female
  Weight: 102.06 kg

DRUGS (12)
  1. FENTANYL CITRATE [Suspect]
     Indication: PAIN
     Dosage: 100 UG/HR + 50 UG/HR.
     Route: 062
  2. FENTORA [Suspect]
     Indication: BREAKTHROUGH PAIN
     Route: 048
  3. SYNTHROID [Concomitant]
     Indication: HYPOTHALAMO-PITUITARY DISORDER
     Route: 048
  4. METFORMIN [Concomitant]
     Indication: GLUCOSE TOLERANCE IMPAIRED
     Dosage: 2 TABLETS TWICE DAILY.
     Route: 048
  5. CYMBALTA [Concomitant]
     Indication: FIBROMYALGIA
     Route: 048
  6. DIAZEPAM [Concomitant]
     Indication: ANXIETY
     Route: 048
  7. PREMARIN [Concomitant]
     Indication: HORMONE REPLACEMENT THERAPY
     Route: 048
  8. SENNA S [Concomitant]
     Indication: CONSTIPATION
     Dosage: 3 TABLETS DAILY
     Route: 048
  9. UNKNOWN MEDICATION [Concomitant]
     Indication: PRODUCT USED FOR UNKNOWN INDICATION
     Route: 048
  10. AMBIEN [Concomitant]
     Indication: SLEEP DISORDER
     Dosage: AS NEEDED
     Route: 048
  11. PRILOSEC [Concomitant]
     Indication: HIATUS HERNIA
     Route: 048
  12. HYDROCORTISONE [Concomitant]
     Indication: HYPOTHALAMO-PITUITARY DISORDER
     Route: 048

REACTIONS (2)
  - ADRENAL INSUFFICIENCY [None]
  - WRONG TECHNIQUE IN DRUG USAGE PROCESS [None]
